FAERS Safety Report 9424559 (Version 2)
Quarter: 2013Q3

REPORT INFORMATION
  Report Type: Spontaneous
  Country: ZA (occurrence: ZA)
  Receive Date: 20130729
  Receipt Date: 20130904
  Transmission Date: 20140515
  Serious: Yes (Hospitalization)
  Sender: FDA-Public Use
  Company Number: ZA-NOVOPROD-383370

PATIENT
  Age: 8 Day
  Sex: Female
  Weight: 3 kg

DRUGS (2)
  1. NOVORAPID FLEXPEN [Suspect]
     Indication: GESTATIONAL DIABETES
     Dosage: 2 IU, PRN
     Route: 064
     Dates: start: 20130625
  2. NOVORAPID FLEXPEN [Suspect]
     Indication: GESTATIONAL DIABETES
     Dosage: 2 IU, PRN
     Route: 064
     Dates: start: 20130625

REACTIONS (2)
  - Pneumonia [Recovered/Resolved]
  - Foetal exposure during pregnancy [Unknown]
